FAERS Safety Report 5076664-9 (Version None)
Quarter: 2006Q3

REPORT INFORMATION
  Report Type: 
  Country: None (occurrence: None)
  Receive Date: 20060810
  Receipt Date: 20060802
  Transmission Date: 20061208
  Serious: Yes (Life-Threatening, Hospitalization)
  Sender: FDA-Public Use
  Company Number: ES-AVENTIS-200614229EU

PATIENT
  Age: 78 Year
  Sex: Male

DRUGS (2)
  1. SEGURIL [Suspect]
     Route: 048
     Dates: end: 20050714
  2. ALDACTONE [Suspect]
     Route: 048
     Dates: end: 20050714

REACTIONS (2)
  - COMA HEPATIC [None]
  - HEPATIC ENCEPHALOPATHY [None]
